FAERS Safety Report 23404124 (Version 2)
Quarter: 2024Q1

REPORT INFORMATION
  Report Type: Report from Study
  Country: US (occurrence: US)
  Receive Date: 20240116
  Receipt Date: 20240222
  Transmission Date: 20240410
  Serious: Yes (Other)
  Sender: FDA-Public Use
  Company Number: US-TAKEDA-2023TUS088319

PATIENT
  Sex: Female

DRUGS (2)
  1. HUMAN IMMUNOGLOBULIN G [Suspect]
     Active Substance: HUMAN IMMUNOGLOBULIN G
     Indication: Primary immunodeficiency syndrome
     Dosage: UNK
     Route: 065
  2. HUMAN IMMUNOGLOBULIN G [Suspect]
     Active Substance: HUMAN IMMUNOGLOBULIN G
     Indication: Hypogammaglobulinaemia

REACTIONS (13)
  - Myasthenia gravis [Unknown]
  - Rheumatic disorder [Unknown]
  - Immunoglobulins increased [Unknown]
  - Gingival bleeding [Unknown]
  - Oral pain [Unknown]
  - Asthma [Unknown]
  - Gastrointestinal disorder [Unknown]
  - Dysphonia [Unknown]
  - Herpes zoster [Unknown]
  - Sleep apnoea syndrome [Unknown]
  - Nasal septum deviation [Unknown]
  - Vision blurred [Unknown]
  - Malaise [Unknown]
